FAERS Safety Report 4984283-5 (Version None)
Quarter: 2006Q2

REPORT INFORMATION
  Report Type: 
  Country: None (occurrence: None)
  Receive Date: 20060420
  Receipt Date: 20060405
  Transmission Date: 20061013
  Serious: No
  Sender: FDA-Public Use
  Company Number: CH-2006-007678

PATIENT
  Age: 45 Year
  Sex: Female

DRUGS (1)
  1. MIRENA [Suspect]
     Dosage: 20 UG/DAY, OCNT, INTRA-UTERINE
     Route: 015

REACTIONS (3)
  - BREAST CANCER FEMALE [None]
  - METASTASES TO LYMPH NODES [None]
  - PROGESTERONE RECEPTOR ASSAY POSITIVE [None]
